FAERS Safety Report 11969055 (Version 1)
Quarter: 2016Q1

REPORT INFORMATION
  Report Type: Spontaneous
  Country: US (occurrence: US)
  Receive Date: 20160128
  Receipt Date: 20160128
  Transmission Date: 20160526
  Serious: No
  Sender: FDA-Public Use
  Company Number: PHEH2015US007748

PATIENT
  Sex: Female

DRUGS (2)
  1. EXELON PATCH [Suspect]
     Active Substance: RIVASTIGMINE
     Route: 065
  2. EXELON PATCH [Suspect]
     Active Substance: RIVASTIGMINE
     Indication: PRODUCT USED FOR UNKNOWN INDICATION
     Dosage: TOOK HALF OF THE RECOMMENDED DOSE
     Route: 062

REACTIONS (13)
  - Urticaria [Unknown]
  - Skin disorder [Unknown]
  - Pruritus [Not Recovered/Not Resolved]
  - Incorrect dose administered [Unknown]
  - Application site erythema [Unknown]
  - Erythema [Not Recovered/Not Resolved]
  - Rash pruritic [Unknown]
  - Application site rash [Unknown]
  - Pain [Unknown]
  - Pigmentation disorder [Unknown]
  - Skin swelling [Unknown]
  - Hypersensitivity [Unknown]
  - Application site pruritus [Unknown]
